FAERS Safety Report 8180387-7 (Version None)
Quarter: 2012Q1

REPORT INFORMATION
  Report Type: 
  Country: None (occurrence: None)
  Receive Date: 20120302
  Receipt Date: 20111114
  Transmission Date: 20120608
  Serious: No
  Sender: FDA-Public Use
  Company Number: US-COVIDIEN/TYCO HEALTHCARE/MALLINCKRODT-T201102646

PATIENT
  Sex: Female

DRUGS (2)
  1. RESTORIL [Suspect]
     Indication: INSOMNIA
     Dosage: 30 MG, QHS
     Route: 048
     Dates: start: 20110801
  2. DAILY VITAMINS [Concomitant]

REACTIONS (1)
  - DYSGEUSIA [None]
